FAERS Safety Report 20653939 (Version 4)
Quarter: 2025Q1

REPORT INFORMATION
  Report Type: Spontaneous
  Country: FR (occurrence: FR)
  Receive Date: 20220330
  Receipt Date: 20250122
  Transmission Date: 20250409
  Serious: Yes (Other)
  Sender: PFIZER
  Company Number: FR-PFIZER INC-202200439087

PATIENT
  Age: 79 Year
  Sex: Female

DRUGS (11)
  1. DAPTOMYCIN [Suspect]
     Active Substance: DAPTOMYCIN
     Indication: Staphylococcal infection
     Dates: start: 202105, end: 20210810
  2. DAPTOMYCIN [Suspect]
     Active Substance: DAPTOMYCIN
     Indication: Vascular device infection
  3. LINEZOLID [Suspect]
     Active Substance: LINEZOLID
     Indication: Staphylococcal infection
     Dates: start: 202105, end: 202108
  4. LINEZOLID [Suspect]
     Active Substance: LINEZOLID
     Indication: Vascular device infection
  5. CEFAZOLIN [Suspect]
     Active Substance: CEFAZOLIN
     Indication: Staphylococcal infection
  6. CEFAZOLIN [Suspect]
     Active Substance: CEFAZOLIN
     Indication: Vascular device infection
  7. SIVEXTRO [Suspect]
     Active Substance: TEDIZOLID PHOSPHATE
     Indication: Staphylococcal infection
     Dates: start: 202109
  8. SIVEXTRO [Suspect]
     Active Substance: TEDIZOLID PHOSPHATE
     Indication: Vascular device infection
  9. SIVEXTRO [Suspect]
     Active Substance: TEDIZOLID PHOSPHATE
     Indication: Sepsis
  10. RIFAMPIN [Concomitant]
     Active Substance: RIFAMPIN
     Indication: Staphylococcal infection
     Route: 048
     Dates: start: 202105, end: 20210810
  11. RIFAMPIN [Concomitant]
     Active Substance: RIFAMPIN
     Indication: Vascular device infection

REACTIONS (9)
  - Pancytopenia [Unknown]
  - Drug ineffective [Unknown]
  - Glomerular filtration rate abnormal [Unknown]
  - Blood creatinine increased [Unknown]
  - Fall [Unknown]
  - Gait disturbance [Unknown]
  - Off label use [Unknown]
  - Off label use [Unknown]
  - Product use issue [Unknown]

NARRATIVE: CASE EVENT DATE: 20210101
